FAERS Safety Report 4965874-4 (Version None)
Quarter: 2006Q2

REPORT INFORMATION
  Report Type: 
  Country: None (occurrence: None)
  Receive Date: 20060405
  Receipt Date: 20060405
  Transmission Date: 20061013
  Serious: Yes (Life-Threatening, Hospitalization)
  Sender: FDA-Public Use
  Company Number: None

PATIENT
  Age: 24 Year
  Sex: Female
  Weight: 58.9676 kg

DRUGS (1)
  1. CYTOTEC [Suspect]
     Indication: LABOUR STIMULATION
     Dosage: 1 PILL INSERTED VAGINALLY ONCE VAG
     Route: 067
     Dates: start: 19981209, end: 19981209

REACTIONS (6)
  - ABNORMAL LABOUR [None]
  - BLEEDING PERIPARTUM [None]
  - DRUG EXPOSURE DURING PREGNANCY [None]
  - FORCEPS DELIVERY [None]
  - OFF LABEL USE [None]
  - POSTPARTUM HAEMORRHAGE [None]
